FAERS Safety Report 10735849 (Version 1)
Quarter: 2015Q1

REPORT INFORMATION
  Report Type: Spontaneous
  Country: US (occurrence: US)
  Receive Date: 20150126
  Receipt Date: 20150126
  Transmission Date: 20150721
  Serious: Yes (Hospitalization)
  Sender: FDA-Public Use
  Company Number: US-BIOGENIDEC-2015BI006807

PATIENT
  Age: 67 Year
  Sex: Female

DRUGS (11)
  1. TRAMADOL HYDROCHLORIDE. [Concomitant]
     Active Substance: TRAMADOL HYDROCHLORIDE
  2. TOPIRAMATE. [Concomitant]
     Active Substance: TOPIRAMATE
  3. HYDROCODONE BITARTRATE. [Concomitant]
     Active Substance: HYDROCODONE BITARTRATE
  4. TYLENOL PM EXTRA STRENGTH [Concomitant]
     Active Substance: ACETAMINOPHEN\DIPHENHYDRAMINE HYDROCHLORIDE
  5. MONTELUKAST SODIUM. [Concomitant]
     Active Substance: MONTELUKAST SODIUM
  6. METOCLOPRAMIDE HCI [Concomitant]
  7. MODAFINIL. [Concomitant]
     Active Substance: MODAFINIL
  8. TECFIDERA [Suspect]
     Active Substance: DIMETHYL FUMARATE
     Indication: MULTIPLE SCLEROSIS
     Route: 048
     Dates: end: 201410
  9. VESICARE [Concomitant]
     Active Substance: SOLIFENACIN SUCCINATE
  10. CIPRO [Concomitant]
     Active Substance: CIPROFLOXACIN HYDROCHLORIDE
  11. SERTRALINE HCI [Concomitant]

REACTIONS (3)
  - Blood count abnormal [Unknown]
  - Alopecia [Unknown]
  - Confusional state [Unknown]

NARRATIVE: CASE EVENT DATE: 201410
